FAERS Safety Report 7106221-1 (Version None)
Quarter: 2010Q4

REPORT INFORMATION
  Report Type: 
  Country: None (occurrence: None)
  Receive Date: 20101116
  Receipt Date: 20101111
  Transmission Date: 20110411
  Serious: No
  Sender: FDA-Public Use
  Company Number: US-BAYER-201036219NA

PATIENT
  Age: 63 Year
  Sex: Female

DRUGS (1)
  1. ULTRAVIST 300 [Suspect]
     Indication: ANGIOGRAM CEREBRAL
     Dosage: TOTAL DAILY DOSE: 80 ML
     Route: 042
     Dates: start: 20100803, end: 20100803

REACTIONS (2)
  - PRURITUS [None]
  - RASH MACULAR [None]
